FAERS Safety Report 4659604-3 (Version None)
Quarter: 2005Q2

REPORT INFORMATION
  Report Type: 
  Country: None (occurrence: None)
  Receive Date: 20050510
  Receipt Date: 20050429
  Transmission Date: 20051028
  Serious: Yes (Hospitalization)
  Sender: FDA-Public Use
  Company Number: 2005068764

PATIENT
  Age: 59 Year
  Sex: Female

DRUGS (4)
  1. NORVASC [Suspect]
     Indication: HYPERTENSION
     Dosage: 225 MG (DAILY), ORAL
     Route: 048
  2. VENLFAXINE HYDROCHLORIDE          (VENLAFAXINE HYDROCHLORIDE) [Suspect]
     Indication: DEPRESSION
     Dosage: 225 MG (DAILY), ORAL
     Route: 048
     Dates: start: 20041026, end: 20041115
  3. HYDROCHLOROTHIAZIDE [Concomitant]
  4. CAPTOPRIL [Suspect]
     Indication: ILL-DEFINED DISORDER
     Dosage: 100 MG (DAILY), ORAL; LONG TIME
     Route: 048

REACTIONS (5)
  - ACTIVITIES OF DAILY LIVING IMPAIRED [None]
  - CONDITION AGGRAVATED [None]
  - DEPRESSION [None]
  - DRUG INTERACTION [None]
  - TREMOR [None]
